FAERS Safety Report 8362169-6 (Version None)
Quarter: 2012Q2

REPORT INFORMATION
  Report Type: 
  Country: None (occurrence: None)
  Receive Date: 20120515
  Receipt Date: 20120509
  Transmission Date: 20120825
  Serious: Yes (Hospitalization, Other)
  Sender: FDA-Public Use
  Company Number: PHHY2012US039745

PATIENT
  Age: 68 Year
  Sex: Female

DRUGS (3)
  1. PREDNISONE [Suspect]
     Indication: TEMPORAL ARTERITIS
     Dosage: 100 MG, UNK
     Route: 048
  2. PREDNISONE [Suspect]
     Dosage: 50 MG, UNK
  3. PREDNISONE [Suspect]
     Dosage: 8 MG, UNK

REACTIONS (8)
  - PELVIC PROLAPSE [None]
  - VAGINAL ULCERATION [None]
  - OSTEOPENIA [None]
  - MUSCLE ATROPHY [None]
  - PAIN [None]
  - ASTHENIA [None]
  - DIABETES MELLITUS [None]
  - ECTROPION OF CERVIX [None]
